FAERS Safety Report 5813626-5 (Version None)
Quarter: 2008Q3

REPORT INFORMATION
  Report Type: 
  Country: None (occurrence: None)
  Receive Date: 20080714
  Receipt Date: 20080627
  Transmission Date: 20090109
  Serious: Yes (Hospitalization)
  Sender: FDA-Public Use
  Company Number: 2008BI016699

PATIENT
  Age: 52 Year
  Sex: Female
  Weight: 84.8226 kg

DRUGS (2)
  1. TYSABRI [Suspect]
     Indication: MULTIPLE SCLEROSIS
     Dosage: 300 MG; QM; IV
     Route: 042
     Dates: start: 20071001
  2. BACLOFEN [Concomitant]

REACTIONS (8)
  - BLOOD PRESSURE DECREASED [None]
  - FEELING ABNORMAL [None]
  - INFUSION SITE PAIN [None]
  - MUSCLE SPASMS [None]
  - PAIN [None]
  - PANCREATIC DISORDER [None]
  - PETECHIAE [None]
  - SWELLING [None]
